FAERS Safety Report 6197000-0 (Version None)
Quarter: 2009Q2

REPORT INFORMATION
  Report Type: 
  Country: None (occurrence: None)
  Receive Date: 20090520
  Receipt Date: 20090508
  Transmission Date: 20091009
  Serious: Yes (Other)
  Sender: FDA-Public Use
  Company Number: JP-PFIZER INC-2009214595

PATIENT

DRUGS (1)
  1. ZOLOFT [Suspect]
     Route: 048

REACTIONS (1)
  - ORAL MUCOSAL EXFOLIATION [None]
